FAERS Safety Report 15818789 (Version 1)
Quarter: 2019Q1

REPORT INFORMATION
  Report Type: Not Available
  Country: US (occurrence: US)
  Receive Date: 20190113
  Receipt Date: 20190113
  Transmission Date: 20190417
  Serious: No
  Sender: FDA-Public Use
  Company Number: US-NEUROCRINE BIOSCIENCES INC.-2019NBI00029

PATIENT
  Sex: Female

DRUGS (2)
  1. INGREZZA [Suspect]
     Active Substance: VALBENAZINE
     Indication: PERIORBITAL DISORDER
     Dates: start: 2018, end: 2018
  2. INGREZZA [Suspect]
     Active Substance: VALBENAZINE
     Dates: start: 2018

REACTIONS (3)
  - Paraesthesia oral [Unknown]
  - Off label use [Unknown]
  - Tongue biting [Unknown]

NARRATIVE: CASE EVENT DATE: 2018
